FAERS Safety Report 5915488-4 (Version None)
Quarter: 2008Q4

REPORT INFORMATION
  Report Type: 
  Country: None (occurrence: None)
  Receive Date: 20081010
  Receipt Date: 20081001
  Transmission Date: 20090506
  Serious: Yes (Hospitalization)
  Sender: FDA-Public Use
  Company Number: US-ELI_LILLY_AND_COMPANY-US200810000361

PATIENT
  Age: 78 Year
  Sex: Male

DRUGS (9)
  1. CYMBALTA [Suspect]
     Indication: DEPRESSION
     Dosage: 60 MG, UNK
     Dates: start: 20050101
  2. PREVACID [Concomitant]
  3. MULTI-VITAMIN [Concomitant]
  4. FOLIC ACID [Concomitant]
  5. FEOSOL [Concomitant]
  6. CALCIUM WITH VITAMIN D [Concomitant]
  7. LOVAZA [Concomitant]
  8. FISH OIL [Concomitant]
  9. FLAGYL [Concomitant]

REACTIONS (3)
  - REGURGITATION [None]
  - THORACIC CAVITY DRAINAGE [None]
  - WEIGHT DECREASED [None]
